FAERS Safety Report 6925789-9 (Version None)
Quarter: 2010Q3

REPORT INFORMATION
  Report Type: 
  Country: None (occurrence: None)
  Receive Date: 20100816
  Receipt Date: 20100809
  Transmission Date: 20110219
  Serious: Yes (Hospitalization)
  Sender: FDA-Public Use
  Company Number: B0670032A

PATIENT
  Sex: Female

DRUGS (7)
  1. LANOXIN [Suspect]
     Indication: ATRIAL FIBRILLATION
     Route: 048
     Dates: start: 20080101, end: 20100803
  2. LASIX [Suspect]
     Indication: CARDIAC FAILURE
     Route: 048
     Dates: start: 20080101, end: 20100803
  3. ALDACTONE [Suspect]
     Indication: CARDIAC FAILURE
     Route: 048
     Dates: start: 20080101, end: 20100803
  4. BISOPROLOL FUMARATE [Concomitant]
     Indication: ATRIAL FIBRILLATION
     Route: 048
     Dates: start: 20080101, end: 20100803
  5. SPIRIVA [Concomitant]
     Route: 048
     Dates: start: 20080101, end: 20100803
  6. GLUCOPHAGE [Concomitant]
     Indication: DIABETES MELLITUS
     Route: 048
     Dates: start: 20080101, end: 20100803
  7. ASPIRIN [Concomitant]
     Route: 048
     Dates: start: 20080101, end: 20100803

REACTIONS (2)
  - DEHYDRATION [None]
  - THERAPEUTIC AGENT TOXICITY [None]
